FAERS Safety Report 17840931 (Version 2)
Quarter: 2020Q2

REPORT INFORMATION
  Report Type: Report from Study
  Country: EE (occurrence: EE)
  Receive Date: 20200529
  Receipt Date: 20200616
  Transmission Date: 20200714
  Serious: Yes (Hospitalization, Other)
  Sender: FDA-Public Use
  Company Number: EE-MELINTA THERAPEUTICS, INC-E2B_00000770

PATIENT
  Age: 67 Year
  Sex: Male
  Weight: 82 kg

DRUGS (24)
  1. AUGMENTINE [Concomitant]
     Active Substance: AMOXICILLIN\CLAVULANATE POTASSIUM
     Indication: CHOLECYSTITIS ACUTE
     Route: 041
     Dates: start: 20200401, end: 20200412
  2. LACTATED RINGERS SOLUTION [Concomitant]
     Active Substance: CALCIUM CHLORIDE\POTASSIUM CHLORIDE\SODIUM CHLORIDE\SODIUM LACTATE
     Indication: CHOLECYSTITIS ACUTE
     Route: 041
     Dates: start: 20200407, end: 20200415
  3. KETOPROFEN. [Concomitant]
     Active Substance: KETOPROFEN
     Indication: CHOLECYSTITIS ACUTE
     Route: 041
     Dates: start: 20200407, end: 20200415
  4. PARACETAMOL [Concomitant]
     Active Substance: ACETAMINOPHEN
     Indication: CHOLECYSTITIS ACUTE
     Route: 048
     Dates: start: 20200407, end: 20200426
  5. DELAFLOXACIN [Suspect]
     Active Substance: DELAFLOXACIN MEGLUMINE
     Route: 048
     Dates: start: 20200421, end: 20200426
  6. ELIQUIS [Concomitant]
     Active Substance: APIXABAN
     Indication: ATRIAL FIBRILLATION
     Route: 048
     Dates: start: 20200416
  7. ENOXAPARIN SODIUM. [Concomitant]
     Active Substance: ENOXAPARIN SODIUM
     Indication: ATRIAL FIBRILLATION
     Route: 058
     Dates: start: 20200407, end: 20200415
  8. NO SPA [Concomitant]
     Active Substance: DROTAVERINE HYDROCHLORIDE
     Indication: CHOLECYSTITIS ACUTE
     Route: 041
     Dates: start: 20200407, end: 20200415
  9. METOPROLOL. [Concomitant]
     Active Substance: METOPROLOL
     Indication: HYPERTENSION
     Route: 048
     Dates: start: 20151218
  10. METOPROLOL. [Concomitant]
     Active Substance: METOPROLOL
     Route: 048
     Dates: start: 20151218
  11. QUETIAPINE. [Concomitant]
     Active Substance: QUETIAPINE
     Indication: CEREBROVASCULAR ACCIDENT
     Route: 048
     Dates: start: 20190103
  12. DELAFLOXACIN [Suspect]
     Active Substance: DELAFLOXACIN MEGLUMINE
     Indication: SKIN BACTERIAL INFECTION
     Route: 048
     Dates: start: 20200421, end: 20200426
  13. IMOVANE [Concomitant]
     Active Substance: ZOPICLONE
     Indication: CEREBROVASCULAR ACCIDENT
     Route: 048
     Dates: start: 20190103
  14. TORASEMIDE [Concomitant]
     Active Substance: TORSEMIDE
     Indication: CARDIAC FAILURE
     Route: 048
     Dates: start: 20200331
  15. DUPHALAC [Concomitant]
     Active Substance: LACTULOSE
     Indication: CHOLECYSTITIS ACUTE
     Route: 048
     Dates: start: 20200407, end: 20200427
  16. METRONIDAZOLE. [Concomitant]
     Active Substance: METRONIDAZOLE
     Indication: CHOLECYSTITIS ACUTE
     Route: 041
     Dates: start: 20200413, end: 20200414
  17. METRONIDAZOLE. [Concomitant]
     Active Substance: METRONIDAZOLE
     Route: 048
     Dates: start: 20200415, end: 20200417
  18. CEFUROXIME. [Concomitant]
     Active Substance: CEFUROXIME
     Indication: CHOLECYSTITIS ACUTE
     Route: 041
     Dates: start: 20200413, end: 20200414
  19. OMEPRAZOLE. [Concomitant]
     Active Substance: OMEPRAZOLE
     Indication: CHRONIC GASTRITIS
     Route: 048
     Dates: start: 20151218
  20. IMDUR [Concomitant]
     Active Substance: ISOSORBIDE MONONITRATE
     Indication: HYPERTENSION
     Route: 048
     Dates: start: 20151218
  21. FOLIC ACID. [Concomitant]
     Active Substance: FOLIC ACID
     Indication: FOLATE DEFICIENCY
     Route: 048
     Dates: start: 20200331
  22. DELAFLOXACIN [Suspect]
     Active Substance: DELAFLOXACIN MEGLUMINE
     Indication: SKIN BACTERIAL INFECTION
     Route: 041
     Dates: start: 20200417, end: 20200421
  23. AXETINE [Concomitant]
     Indication: CHOLECYSTITIS ACUTE
     Route: 048
     Dates: start: 20200415, end: 20200417
  24. RAMIPRIL. [Concomitant]
     Active Substance: RAMIPRIL
     Indication: HYPERTENSION
     Route: 048
     Dates: start: 20151218

REACTIONS (2)
  - Clostridium difficile colitis [Recovered/Resolved]
  - Septic shock [Recovered/Resolved]

NARRATIVE: CASE EVENT DATE: 20200514
